FAERS Safety Report 11818964 (Version 1)
Quarter: 2015Q4

REPORT INFORMATION
  Report Type: Spontaneous
  Country: US (occurrence: None)
  Receive Date: 20151209
  Receipt Date: 20151209
  Transmission Date: 20160305
  Serious: Yes (Hospitalization)
  Sender: FDA-Public Use
  Company Number: None

PATIENT
  Age: 82 Year
  Sex: Female
  Weight: 56.2 kg

DRUGS (12)
  1. LASIX [Concomitant]
     Active Substance: FUROSEMIDE
  2. SYNTHROID [Concomitant]
     Active Substance: LEVOTHYROXINE SODIUM
  3. WARFARIN [Suspect]
     Active Substance: WARFARIN
     Indication: CORONARY ARTERY DISEASE
     Dosage: CHRONIC
     Route: 048
  4. ECOTRIN [Suspect]
     Active Substance: ASPIRIN
     Indication: CEREBROVASCULAR ACCIDENT
     Dosage: CHRONIC
     Route: 048
  5. CRESTOR [Concomitant]
     Active Substance: ROSUVASTATIN CALCIUM
  6. CA + VITD [Concomitant]
  7. COREG CR [Concomitant]
     Active Substance: CARVEDILOL PHOSPHATE
  8. TRICOR [Concomitant]
     Active Substance: FENOFIBRATE
  9. ECOTRIN [Suspect]
     Active Substance: ASPIRIN
     Indication: CORONARY ARTERY DISEASE
     Dosage: CHRONIC
     Route: 048
  10. FOLVITE [Concomitant]
     Active Substance: FOLIC ACID
  11. ZOLOFT [Concomitant]
     Active Substance: SERTRALINE HYDROCHLORIDE
  12. DETROL LA [Concomitant]
     Active Substance: TOLTERODINE TARTRATE

REACTIONS (3)
  - Haematoma [None]
  - Haemorrhagic anaemia [None]
  - International normalised ratio increased [None]

NARRATIVE: CASE EVENT DATE: 20150421
